FAERS Safety Report 10082172 (Version 2)
Quarter: 2014Q2

REPORT INFORMATION
  Report Type: Spontaneous
  Country: US (occurrence: US)
  Receive Date: 20140416
  Receipt Date: 20140605
  Transmission Date: 20141212
  Serious: No
  Sender: FDA-Public Use
  Company Number: US-PFIZER INC-2014103870

PATIENT
  Age: 54 Year
  Sex: Male

DRUGS (8)
  1. BOSULIF [Suspect]
     Indication: NEOPLASM MALIGNANT
     Dosage: 400 MG, DAILY
     Route: 048
     Dates: start: 20140325
  2. ALLEGRA [Concomitant]
     Indication: HYPERSENSITIVITY
     Dosage: 180 MG, UNK
  3. SINGULAIR [Concomitant]
     Dosage: 10 MG, UNK
  4. VALTREX [Concomitant]
     Dosage: 1 MG, UNK
  5. PROZAC [Concomitant]
     Dosage: 10 MG, UNK
  6. METHOCARBAMOL [Concomitant]
     Dosage: 500 MG, UNK
  7. PRAVASTATIN SODIUM [Concomitant]
     Dosage: 40 MG, UNK
  8. CLOPIDOGREL BISULFATE [Concomitant]
     Dosage: 75 MG, UNK

REACTIONS (5)
  - Nausea [Not Recovered/Not Resolved]
  - Muscle spasms [Not Recovered/Not Resolved]
  - White blood cell count increased [Unknown]
  - Disease progression [Unknown]
  - Neoplasm malignant [Unknown]
